FAERS Safety Report 14171304 (Version 2)
Quarter: 2017Q4

REPORT INFORMATION
  Report Type: Spontaneous
  Country: US (occurrence: US)
  Receive Date: 20171108
  Receipt Date: 20171127
  Transmission Date: 20180321
  Serious: Yes (Hospitalization)
  Sender: FDA-Public Use
  Company Number: US-SA-2017SA213146

PATIENT
  Age: 71 Year
  Sex: Female

DRUGS (4)
  1. LANTUS SOLOSTAR [Suspect]
     Active Substance: INSULIN GLARGINE
     Dosage: DOSE:10AM/35PM UNITS
     Route: 051
     Dates: start: 201708
  2. METFORMIN [Concomitant]
     Active Substance: METFORMIN HYDROCHLORIDE
     Route: 065
  3. SOLOSTAR [Suspect]
     Active Substance: DEVICE
     Dates: start: 201708
  4. NOVOLOG [Concomitant]
     Active Substance: INSULIN ASPART
     Dosage: SLIDING SCALE AT MEALS
     Route: 065

REACTIONS (5)
  - Injection site haemorrhage [Unknown]
  - Injection site bruising [Unknown]
  - Product use issue [Unknown]
  - Hospitalisation [Unknown]
  - Device use issue [Unknown]

NARRATIVE: CASE EVENT DATE: 201708
